FAERS Safety Report 4728400-0 (Version None)
Quarter: 2005Q3

REPORT INFORMATION
  Report Type: 
  Country: None (occurrence: None)
  Receive Date: 20050729
  Receipt Date: 20040803
  Transmission Date: 20060218
  Serious: No
  Sender: FDA-Public Use
  Company Number: US-GLAXOSMITHKLINE-A0520746A

PATIENT
  Age: 5 Week
  Sex: Male

DRUGS (3)
  1. ZANTAC [Suspect]
     Indication: DRUG USE FOR UNKNOWN INDICATION
     Dosage: .8ML TWICE PER DAY
     Route: 048
  2. REGLAN [Concomitant]
  3. DIFLUCAN [Concomitant]

REACTIONS (1)
  - INSOMNIA [None]
